FAERS Safety Report 5471752-7 (Version None)
Quarter: 2007Q3

REPORT INFORMATION
  Report Type: 
  Country: None (occurrence: None)
  Receive Date: 20070928
  Receipt Date: 20070504
  Transmission Date: 20080115
  Serious: No
  Sender: FDA-Public Use
  Company Number: US-BRISTOL-MYERS SQUIBB COMPANY-13770060

PATIENT
  Sex: Male
  Weight: 103 kg

DRUGS (12)
  1. DEFINITY [Suspect]
     Indication: ECHOCARDIOGRAM
     Route: 042
     Dates: start: 20070424, end: 20070424
  2. COUMADIN [Concomitant]
  3. PROGRAF [Concomitant]
  4. MYFORTIC [Concomitant]
  5. PREDNISONE [Concomitant]
  6. NEXIUM [Concomitant]
  7. METOPROLOL SUCCINATE [Concomitant]
  8. HYDRALAZINE HCL [Concomitant]
  9. LYRICA [Concomitant]
  10. SODIUM BICARBONATE [Concomitant]
  11. IMODIUM [Concomitant]
  12. POTASSIUM CHLORIDE [Concomitant]

REACTIONS (2)
  - NAUSEA [None]
  - VOMITING [None]
